FAERS Safety Report 13768160 (Version 1)
Quarter: 2017Q3

REPORT INFORMATION
  Report Type: Report from Study
  Country: None (occurrence: BR)
  Receive Date: 20170719
  Receipt Date: 20170719
  Transmission Date: 20171127
  Serious: Yes (Other)
  Sender: FDA-Public Use
  Company Number: BR-ABBVIE-17K-020-2038540-00

PATIENT
  Age: 60 Year
  Sex: Female
  Weight: 57 kg

DRUGS (18)
  1. HUMIRA [Suspect]
     Active Substance: ADALIMUMAB
     Indication: RHEUMATOID ARTHRITIS
     Route: 058
     Dates: start: 20140128
  2. CALCIUM CARBONATE. [Concomitant]
     Active Substance: CALCIUM CARBONATE
     Indication: PRODUCT USED FOR UNKNOWN INDICATION
     Route: 048
     Dates: start: 2002
  3. THEANINE [Concomitant]
     Active Substance: THEANINE
     Indication: CARDIOVASCULAR DISORDER
     Route: 048
     Dates: start: 2012
  4. LACTASE [Concomitant]
     Active Substance: LACTASE
     Indication: PRODUCT USED FOR UNKNOWN INDICATION
     Route: 048
     Dates: start: 2016
  5. ALEKTOS [Suspect]
     Active Substance: BILASTINE
     Indication: PRODUCT USED FOR UNKNOWN INDICATION
     Route: 065
  6. PRELONE [Concomitant]
     Active Substance: PREDNISOLONE
     Indication: PRODUCT USED FOR UNKNOWN INDICATION
     Route: 048
     Dates: start: 1996
  7. CALCORT [Suspect]
     Active Substance: DEFLAZACORT
     Indication: PRODUCT USED FOR UNKNOWN INDICATION
     Route: 065
  8. LEVOID [Concomitant]
     Active Substance: LEVOTHYROXINE
     Indication: THYROID DISORDER
     Route: 048
     Dates: start: 2013
  9. GLIFAGE XR [Concomitant]
     Active Substance: METFORMIN HYDROCHLORIDE
     Indication: DIABETES MELLITUS
     Route: 048
     Dates: start: 2014
  10. BEZAFIBRATE [Concomitant]
     Active Substance: BEZAFIBRATE
     Indication: BLOOD TRIGLYCERIDES
     Route: 048
  11. CIMICIFUGA [Concomitant]
     Active Substance: BLACK COHOSH
     Indication: HOT FLUSH
  12. ZINA [Suspect]
     Active Substance: LEVOCETIRIZINE DIHYDROCHLORIDE
     Indication: PRODUCT USED FOR UNKNOWN INDICATION
     Route: 065
  13. PROLIA [Concomitant]
     Active Substance: DENOSUMAB
     Indication: OSTEOPOROSIS PROPHYLAXIS
     Route: 030
     Dates: start: 2015
  14. FLUOXETINE [Concomitant]
     Active Substance: FLUOXETINE HYDROCHLORIDE
     Indication: PRODUCT USED FOR UNKNOWN INDICATION
     Route: 048
     Dates: start: 2002
  15. ARTROLIVE [Suspect]
     Active Substance: CHONDROITIN SULFATE (BOVINE)\GLUCOSAMINE SULFATE
     Indication: PRODUCT USED FOR UNKNOWN INDICATION
     Route: 065
  16. CIMICIFUGA [Concomitant]
     Active Substance: BLACK COHOSH
     Indication: MENOPAUSE
     Route: 048
     Dates: start: 2012
  17. HESPERIDIN [Concomitant]
     Active Substance: HESPERIDIN
     Indication: CARDIOVASCULAR DISORDER
     Route: 048
     Dates: start: 2012
  18. VITAMIN D3 [Concomitant]
     Active Substance: CHOLECALCIFEROL
     Indication: VITAMIN D DEFICIENCY
     Route: 048

REACTIONS (14)
  - Somnolence [Not Recovered/Not Resolved]
  - Skin exfoliation [Recovering/Resolving]
  - Fibromyalgia [Not Recovered/Not Resolved]
  - Tachycardia [Recovered/Resolved]
  - Varicose vein [Unknown]
  - Insomnia [Not Recovered/Not Resolved]
  - Erythema [Recovering/Resolving]
  - Swelling face [Recovering/Resolving]
  - Pain [Not Recovered/Not Resolved]
  - Gastritis [Not Recovered/Not Resolved]
  - Vitamin D deficiency [Recovering/Resolving]
  - Respiratory failure [Recovered/Resolved]
  - Liver disorder [Not Recovered/Not Resolved]
  - Erythema of eyelid [Unknown]

NARRATIVE: CASE EVENT DATE: 2016
